FAERS Safety Report 25999517 (Version 1)
Quarter: 2025Q4

REPORT INFORMATION
  Report Type: Spontaneous
  Country: US (occurrence: US)
  Receive Date: 20251105
  Receipt Date: 20251105
  Transmission Date: 20260118
  Serious: No
  Sender: Tarsus Pharmaceuticals
  Company Number: US-TARSUS PHARMACEUTICALS-TSP-US-2025-000931

PATIENT

DRUGS (4)
  1. XDEMVY [Suspect]
     Active Substance: LOTILANER
     Indication: Acariasis
     Dosage: 1 DROP, BID
     Route: 047
     Dates: start: 20250811, end: 202509
  2. LISINOPRIL [Concomitant]
     Active Substance: LISINOPRIL
     Indication: Product used for unknown indication
     Dosage: UNK
     Route: 065
  3. FOLIC ACID [Concomitant]
     Active Substance: FOLIC ACID
     Indication: Product used for unknown indication
     Dosage: UNK
     Route: 065
  4. METHOTREXATE [Concomitant]
     Active Substance: METHOTREXATE
     Indication: Product used for unknown indication
     Dosage: UNK
     Route: 065

REACTIONS (7)
  - Ocular hyperaemia [Recovered/Resolved]
  - Eye disorder [Recovered/Resolved]
  - Vision blurred [Recovered/Resolved]
  - Lacrimation increased [Recovered/Resolved]
  - Conjunctivitis allergic [Recovered/Resolved]
  - Eye pruritus [Recovered/Resolved]
  - Eye irritation [Recovered/Resolved]

NARRATIVE: CASE EVENT DATE: 20250909
